FAERS Safety Report 5195480-0 (Version None)
Quarter: 2006Q4

REPORT INFORMATION
  Report Type: 
  Country: None (occurrence: None)
  Receive Date: 20061222
  Receipt Date: 20061222
  Transmission Date: 20070319
  Serious: Yes (Other)
  Sender: FDA-Public Use
  Company Number: None

PATIENT
  Age: 42 Year
  Sex: Male
  Weight: 113.3993 kg

DRUGS (2)
  1. SERTRALINE [Suspect]
     Indication: DEPRESSION
     Dosage: 200MG DAILY PO
     Route: 048
     Dates: start: 20061101, end: 20061221
  2. SERTRALINE [Suspect]
     Dosage: 200MG DAILY PO
     Route: 048
     Dates: start: 20061101, end: 20061221

REACTIONS (4)
  - AGITATION [None]
  - DRUG INEFFECTIVE [None]
  - PARAESTHESIA [None]
  - THERAPEUTIC RESPONSE UNEXPECTED WITH DRUG SUBSTITUTION [None]
